FAERS Safety Report 12527408 (Version 2)
Quarter: 2016Q3

REPORT INFORMATION
  Report Type: Spontaneous
  Country: JP (occurrence: JP)
  Receive Date: 20160705
  Receipt Date: 20160921
  Transmission Date: 20161109
  Serious: Yes (Life-Threatening, Hospitalization, Other)
  Sender: FDA-Public Use
  Company Number: JP-BAYER-2016-126231

PATIENT
  Age: 70 Year
  Sex: Male
  Weight: 70 kg

DRUGS (3)
  1. BAYASPIRIN [Suspect]
     Active Substance: ASPIRIN
     Indication: ACUTE MYOCARDIAL INFARCTION
     Dosage: 100 MG, QD
     Route: 048
     Dates: start: 2014
  2. PLAVIX [Suspect]
     Active Substance: CLOPIDOGREL BISULFATE
     Indication: MYOCARDIAL INFARCTION
     Dosage: 75 MG, QD
     Route: 048
     Dates: start: 2014
  3. MAINTATE [Concomitant]
     Active Substance: BISOPROLOL FUMARATE

REACTIONS (9)
  - Shock haemorrhagic [None]
  - Chest injury [None]
  - Traumatic haematoma [Recovered/Resolved]
  - Labelled drug-drug interaction medication error [None]
  - Pulmonary oedema [None]
  - Mediastinal haemorrhage [Recovered/Resolved]
  - Road traffic accident [None]
  - Acute respiratory distress syndrome [None]
  - Drug administration error [None]

NARRATIVE: CASE EVENT DATE: 20141025
